FAERS Safety Report 8268600-9 (Version None)
Quarter: 2012Q2

REPORT INFORMATION
  Report Type: 
  Country: None (occurrence: None)
  Receive Date: 20120409
  Receipt Date: 20120329
  Transmission Date: 20120825
  Serious: Yes (Hospitalization)
  Sender: FDA-Public Use
  Company Number: GB-PERRIGO-12GB002748

PATIENT
  Sex: Male

DRUGS (1)
  1. EXTRA POWER PAIN RELIEVER 12063/0009 [Suspect]
     Indication: PRODUCT USED FOR UNKNOWN INDICATION
     Dosage: UNK
     Route: 048
     Dates: end: 20120327

REACTIONS (3)
  - HYPERTENSION [None]
  - CHEST PAIN [None]
  - DYSPNOEA [None]
